FAERS Safety Report 5765393-1 (Version None)
Quarter: 2008Q2

REPORT INFORMATION
  Report Type: 
  Country: None (occurrence: None)
  Receive Date: 20080611
  Receipt Date: 20080530
  Transmission Date: 20081010
  Serious: No
  Sender: FDA-Public Use
  Company Number: MY-ELI_LILLY_AND_COMPANY-MY200806000369

PATIENT

DRUGS (2)
  1. CYMBALTA [Suspect]
     Indication: DEPRESSION
     Dosage: 60 MG, DAILY (1/D)
     Route: 048
  2. BENZODIAZEPINE DERIVATIVES [Concomitant]

REACTIONS (3)
  - CONSTIPATION [None]
  - EYE MOVEMENT DISORDER [None]
  - LIVER FUNCTION TEST ABNORMAL [None]
